FAERS Safety Report 20860620 (Version 25)
Quarter: 2023Q1

REPORT INFORMATION
  Report Type: Report from Study
  Country: CN (occurrence: None)
  Receive Date: 20220523
  Receipt Date: 20230215
  Transmission Date: 20230417
  Serious: Yes (Hospitalization)
  Sender: FDA-Public Use
  Company Number: CN-Eisai Medical Research-EC-2022-115297

PATIENT
  Age: 52 Year
  Sex: Male
  Weight: 77 kg

DRUGS (9)
  1. LENVATINIB [Suspect]
     Active Substance: LENVATINIB
     Indication: Hepatocellular carcinoma
     Route: 048
     Dates: start: 20220310, end: 20220515
  2. LENVATINIB [Suspect]
     Active Substance: LENVATINIB
     Route: 048
     Dates: start: 20220628, end: 20220803
  3. PEMBROLIZUMAB [Suspect]
     Active Substance: PEMBROLIZUMAB
     Indication: Hepatocellular carcinoma
     Dosage: QUAVONLIMAB 25 MG  (MK-1308) (+) PEMBROLIZUMAB (MK-2475) (400 MG) (MK-1308A)
     Route: 041
     Dates: start: 20220310, end: 20220420
  4. QUAVONLIMAB [Suspect]
     Active Substance: QUAVONLIMAB
     Dosage: QUAVONLIMAB 25 MG  (MK-1308) (+) PEMBROLIZUMAB (MK-2475) (400 MG) (MK-1308A)
     Route: 041
     Dates: start: 20220628, end: 20220628
  5. ENTECAVIR [Concomitant]
     Active Substance: ENTECAVIR
     Dates: start: 20200212
  6. TENOFOVIR ALAFENAMIDE FUMARATE [Concomitant]
     Active Substance: TENOFOVIR ALAFENAMIDE FUMARATE
     Dates: start: 20220225
  7. OMEPRAZOLE [Concomitant]
     Active Substance: OMEPRAZOLE
     Dates: start: 20220311
  8. DICLOFENAC SODIUM [Concomitant]
     Active Substance: DICLOFENAC SODIUM
     Dates: start: 20220316
  9. ADEMETIONINE BUTANEDISULFONATE [Concomitant]
     Active Substance: ADEMETIONINE BUTANEDISULFONATE
     Dates: start: 20220421

REACTIONS (2)
  - Tumour haemorrhage [Recovered/Resolved]
  - Haemoptysis [Recovered/Resolved]

NARRATIVE: CASE EVENT DATE: 20220514
